FAERS Safety Report 4343429-2 (Version None)
Quarter: 2004Q2

REPORT INFORMATION
  Report Type: 
  Country: None (occurrence: None)
  Receive Date: 20040419
  Receipt Date: 20040407
  Transmission Date: 20050107
  Serious: Yes (Other)
  Sender: FDA-Public Use
  Company Number: 2004024140

PATIENT
  Age: 83 Year
  Sex: Female
  Weight: 72.5755 kg

DRUGS (12)
  1. DILANTIN [Suspect]
     Indication: CONVULSION
  2. NEURONTIN [Suspect]
     Indication: MUSCLE SPASMS
     Dates: start: 20010101
  3. PHENOBARBITAL TAB [Suspect]
     Indication: CONVULSION
  4. METFORMIN HCL [Concomitant]
  5. ALL OTHER THERAPEUTIC PRODUCTS (ALL OTHER THERAPEUTIC PRODUCTS) [Concomitant]
  6. CELECOXIB (CELECOXIB) [Concomitant]
  7. TOLTERODINE L-TARTRATE (TOLTERODINE L-TARTRATE) [Concomitant]
  8. CHONDROITIN SULFATE (CHONDROITIN SULFATE) [Concomitant]
  9. GLUCOSAMINE (GLUCOSAMINE) [Concomitant]
  10. MULTIVITAMINS (ASCORBIC ACID, ERGOCALCIFEROL, FOLIC ACID, NICOTINAMIDE [Concomitant]
  11. TOCOPHEROL CONCENTRATE CAP [Concomitant]
  12. CALCIUM WITH VITAMIN D (CALCIUM PHOSPHATE, CALCIUM SODIUM LACTATE, ERG [Concomitant]

REACTIONS (6)
  - AURA [None]
  - BODY HEIGHT DECREASED [None]
  - BREAST CANCER [None]
  - DRUG INEFFECTIVE [None]
  - MUSCLE SPASMS [None]
  - SOMNOLENCE [None]
